FAERS Safety Report 9086003 (Version 1)
Quarter: 2013Q1

REPORT INFORMATION
  Report Type: Report from Study
  Country: US (occurrence: US)
  Receive Date: 20130131
  Receipt Date: 20130131
  Transmission Date: 20140127
  Serious: No
  Sender: FDA-Public Use
  Company Number: US-ABBOTT-12P-163-0961262-00

PATIENT
  Age: 52 Year
  Sex: Female

DRUGS (25)
  1. HUMIRA 40 MG/0.8 ML PEN [Suspect]
     Indication: PSORIASIS
     Dates: start: 20120717, end: 20120717
  2. HUMIRA 40 MG/0.8 ML PEN [Suspect]
     Dates: start: 20120724
  3. OXYGEN [Concomitant]
     Indication: CHRONIC OBSTRUCTIVE PULMONARY DISEASE
     Dosage: 3.5 LITERS 24 HOURS A DAY
  4. BYETTA [Concomitant]
     Indication: TYPE 2 DIABETES MELLITUS
  5. MORPHINE [Concomitant]
     Indication: PROCEDURAL PAIN
  6. MORPHINE [Concomitant]
     Indication: PAIN
  7. MORPHINE [Concomitant]
     Indication: PAIN
     Dosage: 10MG FOUR TIMES A DAY AS NEEDED
  8. MORPHINE [Concomitant]
     Indication: PAIN
     Dosage: 15MG FOUR TIMES/DAY AS NEEDED
  9. ALPRAZOLAM [Concomitant]
     Indication: ANXIETY
     Dosage: 0.25MG UP TO 6 TABS DAILY
  10. GABAPENTIN [Concomitant]
     Indication: MYALGIA
     Dosage: 300MG 2 TABS AT BEDTIME
  11. AMBIEN [Concomitant]
     Indication: INSOMNIA
     Dosage: 10MG 2 TABS AT BEDTIME
  12. METFORMIN [Concomitant]
     Indication: TYPE 2 DIABETES MELLITUS
  13. ATORVASTATIN [Concomitant]
     Indication: BLOOD CHOLESTEROL INCREASED
     Dosage: 80MG DAILY
  14. IBUPROFEN [Concomitant]
     Indication: PAIN
     Dosage: 300MG DAILY AS NEEDED
  15. HYDROXYZINE [Concomitant]
     Indication: HYPERSENSITIVITY
     Dosage: 50MG UP TO 6 TABS DAILY
  16. PROCHLORPERAZINE [Concomitant]
     Indication: ABDOMINAL DISCOMFORT
  17. LAMOTRIGINE [Concomitant]
     Indication: DEPRESSION
  18. LAMOTRIGINE [Concomitant]
     Indication: BIPOLAR DISORDER
  19. LISINOPRIL [Concomitant]
     Indication: HYPERTENSION
     Dosage: 20MG DAILY
  20. OMEPRAZOLE [Concomitant]
     Indication: BARRETT^S OESOPHAGUS
     Dosage: 40MG DAILY
  21. SERTRALINE [Concomitant]
     Indication: DEPRESSION
  22. SERTRALINE [Concomitant]
     Indication: BIPOLAR DISORDER
  23. VITAMIN D [Concomitant]
     Indication: SUPPLEMENTATION THERAPY
     Dosage: 2-3 TABS DAILY
  24. METHOCARBAMOL [Concomitant]
     Indication: BACK PAIN
  25. JANUVIA [Concomitant]
     Indication: DIABETES MELLITUS
     Dates: start: 20121023

REACTIONS (7)
  - Cyst [Unknown]
  - Injection site pain [Not Recovered/Not Resolved]
  - Abdominal pain [Recovered/Resolved]
  - Diarrhoea [Recovered/Resolved]
  - Local swelling [Not Recovered/Not Resolved]
  - Joint swelling [Not Recovered/Not Resolved]
  - Drug ineffective [Not Recovered/Not Resolved]
